FAERS Safety Report 9372359 (Version 1)
Quarter: 2013Q2

REPORT INFORMATION
  Report Type: Report from Study
  Country: US (occurrence: US)
  Receive Date: 20130627
  Receipt Date: 20130627
  Transmission Date: 20140414
  Serious: Yes (Other)
  Sender: FDA-Public Use
  Company Number: US-MYLANLABS-2012S1021673

PATIENT
  Age: 39 Year
  Sex: Male
  Weight: 92.99 kg

DRUGS (10)
  1. CLOZAPINE TABLETS [Suspect]
     Indication: SCHIZOPHRENIA, PARANOID TYPE
     Route: 048
     Dates: end: 20121010
  2. CLOZAPINE TABLETS [Suspect]
     Indication: SCHIZOPHRENIA, PARANOID TYPE
     Route: 048
     Dates: start: 20121018, end: 20121025
  3. CLOZAPINE TABLETS [Suspect]
     Indication: SCHIZOPHRENIA, PARANOID TYPE
     Route: 048
     Dates: start: 20121029, end: 20121109
  4. CLOZAPINE TABLETS [Suspect]
     Indication: SCHIZOPHRENIA, PARANOID TYPE
     Route: 048
     Dates: start: 20121110, end: 20121117
  5. ZOLOFT [Concomitant]
     Route: 048
  6. ASA [Concomitant]
     Route: 048
  7. CARDIZEM [Concomitant]
     Route: 048
  8. LOFIBRA /00499301/ [Concomitant]
  9. OMEPRAZOLE [Concomitant]
     Route: 048
  10. KLONOPIN [Concomitant]
     Route: 048

REACTIONS (2)
  - Granulocytopenia [Not Recovered/Not Resolved]
  - Leukopenia [Not Recovered/Not Resolved]
